FAERS Safety Report 23597007 (Version 1)
Quarter: 2024Q1

REPORT INFORMATION
  Report Type: Spontaneous
  Country: SE (occurrence: SE)
  Receive Date: 20240305
  Receipt Date: 20240305
  Transmission Date: 20240410
  Serious: Yes (Death, Other)
  Sender: FDA-Public Use
  Company Number: None

PATIENT
  Sex: Male

DRUGS (2)
  1. GABAPENTIN [Suspect]
     Active Substance: GABAPENTIN
     Indication: Pain
     Dosage: 2+1+2
     Route: 064
     Dates: start: 20220101, end: 20230921
  2. PARAFLEX [Suspect]
     Active Substance: CHLORZOXAZONE
     Indication: Pain
     Dosage: 1 TABLETT X 1-3
     Route: 064
     Dates: start: 20220101, end: 20230921

REACTIONS (7)
  - Duodenal atresia [Fatal]
  - Foetal malformation [Fatal]
  - Abortion induced [Fatal]
  - Congenital scoliosis [Fatal]
  - Foetal exposure during pregnancy [Fatal]
  - Exomphalos [Fatal]
  - Talipes [Fatal]

NARRATIVE: CASE EVENT DATE: 20230812
